FAERS Safety Report 5517390-9 (Version None)
Quarter: 2007Q4

REPORT INFORMATION
  Report Type: 
  Country: None (occurrence: None)
  Receive Date: 20071114
  Receipt Date: 20071105
  Transmission Date: 20080405
  Serious: Yes (Death, Disabling)
  Sender: FDA-Public Use
  Company Number: CL-AMGEN-US233276

PATIENT
  Sex: Female

DRUGS (4)
  1. PANITUMUMAB [Suspect]
     Indication: COLORECTAL CANCER
     Route: 042
     Dates: start: 20070328, end: 20070622
  2. OXALIPLATIN [Concomitant]
     Route: 065
     Dates: end: 20070622
  3. FLUOROURACIL [Concomitant]
     Route: 065
     Dates: end: 20070622
  4. LEUCOVORIN CALCIUM [Concomitant]
     Route: 065
     Dates: end: 20070622

REACTIONS (2)
  - COMA [None]
  - LETHARGY [None]
